FAERS Safety Report 4385080-4 (Version None)
Quarter: 2004Q2

REPORT INFORMATION
  Report Type: 
  Country: None (occurrence: None)
  Receive Date: 20040607
  Receipt Date: 20030425
  Transmission Date: 20050107
  Serious: Yes (Hospitalization)
  Sender: FDA-Public Use
  Company Number: 337061

PATIENT
  Age: 19 Year
  Sex: Male

DRUGS (1)
  1. ACCUTANE [Suspect]
     Indication: ACNE
     Dosage: 40 MG DAILY ORAL
     Route: 048
     Dates: start: 20030301, end: 20030401

REACTIONS (5)
  - HEPATITIS ACUTE [None]
  - INFECTIOUS MONONUCLEOSIS [None]
  - JAUNDICE [None]
  - NAUSEA [None]
  - VOMITING [None]
